FAERS Safety Report 9275837 (Version 4)
Quarter: 2014Q3

REPORT INFORMATION
  Report Type: Spontaneous
  Country: US (occurrence: US)
  Receive Date: 20130507
  Receipt Date: 20140915
  Transmission Date: 20150326
  Serious: Yes (Hospitalization, Other)
  Sender: FDA-Public Use
  Company Number: US-BAYER-2013-055791

PATIENT
  Age: 28 Year
  Sex: Female
  Weight: 86.17 kg

DRUGS (1)
  1. MIRENA [Suspect]
     Active Substance: LEVONORGESTREL
     Indication: CONTRACEPTION
     Dosage: 20 MCG/24HR, CONT
     Route: 015
     Dates: start: 200909, end: 20120508

REACTIONS (6)
  - Pregnancy with contraceptive device [None]
  - Drug ineffective [None]
  - Device dislocation [None]
  - Abortion spontaneous [None]
  - Off label use [None]
  - Injury [None]

NARRATIVE: CASE EVENT DATE: 201012
